FAERS Safety Report 16209093 (Version 1)
Quarter: 2019Q2

REPORT INFORMATION
  Report Type: Spontaneous
  Country: US (occurrence: US)
  Receive Date: 20190417
  Receipt Date: 20190417
  Transmission Date: 20190711
  Serious: No
  Sender: FDA-Public Use
  Company Number: US-ASTRAZENECA-2019SE47080

PATIENT
  Sex: Male
  Weight: 118.4 kg

DRUGS (3)
  1. HUMALOG [Concomitant]
     Active Substance: INSULIN LISPRO
     Indication: DIABETES MELLITUS
     Dosage: 20 UNITS FOR BREAKFAST AND LUNCH AND 25 UNITS FOR DINNER
     Route: 058
  2. BYDUREON [Suspect]
     Active Substance: EXENATIDE
     Indication: TYPE 2 DIABETES MELLITUS
     Route: 058
     Dates: start: 20180927
  3. GLARGINE [Concomitant]
     Indication: DIABETES MELLITUS
     Dosage: BEFORE MEALS
     Route: 058

REACTIONS (2)
  - Needle issue [Unknown]
  - Injection site pain [Unknown]
